FAERS Safety Report 25397083 (Version 1)
Quarter: 2025Q2

REPORT INFORMATION
  Report Type: Spontaneous
  Country: CN (occurrence: CN)
  Receive Date: 20250604
  Receipt Date: 20250604
  Transmission Date: 20250716
  Serious: Yes (Other)
  Sender: MYLAN
  Company Number: CN-MYLANLABS-2025M1046066

PATIENT
  Age: 50 Year
  Sex: Male
  Weight: 62.5 kg

DRUGS (5)
  1. LYRICA [Suspect]
     Active Substance: PREGABALIN
     Indication: Analgesic therapy
     Dosage: 75 MILLIGRAM, BID
     Dates: start: 20250507, end: 20250509
  2. HERBALS [Suspect]
     Active Substance: HERBALS
     Indication: Analgesic therapy
     Dosage: 50 MILLIGRAM, QD
     Dates: start: 20250407, end: 20250408
  3. HERBALS [Suspect]
     Active Substance: HERBALS
     Indication: Analgesic therapy
     Dosage: 120 MILLIGRAM, BID
     Dates: start: 20250508, end: 20250509
  4. LIDOCAINE HYDROCHLORIDE [Suspect]
     Active Substance: LIDOCAINE HYDROCHLORIDE
     Indication: Analgesic therapy
     Dosage: 2 MILLILITER, QD
     Dates: start: 20250507, end: 20250508
  5. SODIUM CHLORIDE [Concomitant]
     Active Substance: SODIUM CHLORIDE
     Indication: Vehicle solution use
     Dosage: 2 MILLILITER, QD
     Dates: start: 20250507, end: 20250508

REACTIONS (6)
  - Muscle swelling [Not Recovered/Not Resolved]
  - Anxiety [Not Recovered/Not Resolved]
  - Disinhibition [Not Recovered/Not Resolved]
  - Myalgia [Not Recovered/Not Resolved]
  - White blood cell count decreased [Not Recovered/Not Resolved]
  - Irritability [Not Recovered/Not Resolved]

NARRATIVE: CASE EVENT DATE: 20250509
